FAERS Safety Report 15336016 (Version 2)
Quarter: 2018Q3

REPORT INFORMATION
  Report Type: Spontaneous
  Country: US (occurrence: US)
  Receive Date: 20180830
  Receipt Date: 20180925
  Transmission Date: 20181010
  Serious: No
  Sender: FDA-Public Use
  Company Number: US-PFIZER INC-2018346799

PATIENT
  Age: 27 Year
  Sex: Female

DRUGS (1)
  1. EUCRISA [Suspect]
     Active Substance: CRISABOROLE
     Indication: BLEPHARITIS
     Dosage: UNK UNK, 1X/DAY
     Route: 061
     Dates: start: 20180814, end: 20180816

REACTIONS (3)
  - Burning sensation [Unknown]
  - Condition aggravated [Unknown]
  - Eyelid oedema [Recovered/Resolved]
